FAERS Safety Report 7119688-X (Version None)
Quarter: 2010Q4

REPORT INFORMATION
  Report Type: 
  Country: None (occurrence: None)
  Receive Date: 20101115
  Receipt Date: 20101101
  Transmission Date: 20110411
  Serious: Yes (Hospitalization, Other)
  Sender: FDA-Public Use
  Company Number: 2010P1002395

PATIENT
  Age: 54 Year
  Sex: Male

DRUGS (3)
  1. MINOCYCLINE HCL [Suspect]
     Indication: RASH PRURITIC
     Dosage: 200 MG;QD;PO
     Route: 048
     Dates: start: 20070825, end: 20070901
  2. CON MEDS [Concomitant]
  3. PREV MEDS [Concomitant]

REACTIONS (3)
  - GASTRIC MUCOSAL HYPERTROPHY [None]
  - GASTROENTERITIS EOSINOPHILIC [None]
  - LYMPHADENOPATHY [None]
